FAERS Safety Report 13747090 (Version 2)
Quarter: 2017Q3

REPORT INFORMATION
  Report Type: Spontaneous
  Country: US (occurrence: US)
  Receive Date: 20170712
  Receipt Date: 20170822
  Transmission Date: 20171127
  Serious: Yes (Other)
  Sender: FDA-Public Use
  Company Number: US-ENDO PHARMACEUTICALS INC-2017-003734

PATIENT
  Age: 65 Year
  Sex: Female

DRUGS (1)
  1. BACLOFEN TABLETS 10MG [Suspect]
     Active Substance: BACLOFEN
     Indication: DIABETIC NEUROPATHY
     Dosage: 10 MG, DAILY
     Route: 048
     Dates: start: 20170518, end: 20170519

REACTIONS (4)
  - Lower limb fracture [Unknown]
  - Nausea [Not Recovered/Not Resolved]
  - Loss of consciousness [Recovered/Resolved]
  - Malaise [Unknown]

NARRATIVE: CASE EVENT DATE: 20170518
